FAERS Safety Report 25523751 (Version 2)
Quarter: 2025Q3

REPORT INFORMATION
  Report Type: Spontaneous
  Country: US (occurrence: US)
  Receive Date: 20250707
  Receipt Date: 20250709
  Transmission Date: 20251021
  Serious: Yes (Hospitalization)
  Sender: BAYER HEALTHCARE PHARMACEUTICALS INC.
  Company Number: US-BAYER-2025A083730

PATIENT
  Age: 36 Year
  Sex: Female
  Weight: 62.132 kg

DRUGS (1)
  1. MIRENA [Suspect]
     Active Substance: LEVONORGESTREL
     Indication: Contraception
     Dosage: 20?G/DAY
     Route: 015
     Dates: start: 201208

REACTIONS (6)
  - Abdominal pain lower [None]
  - Asthenia [None]
  - Mental disorder [None]
  - Emotional distress [None]
  - Emotional distress [None]
  - Device use issue [None]
